FAERS Safety Report 25900406 (Version 1)
Quarter: 2025Q4

REPORT INFORMATION
  Report Type: Spontaneous
  Country: UY (occurrence: UY)
  Receive Date: 20251009
  Receipt Date: 20251009
  Transmission Date: 20260118
  Serious: Yes (Other)
  Sender: MYLAN
  Company Number: UY-MYLANLABS-2025M1085775

PATIENT
  Age: 76 Year
  Sex: Female

DRUGS (20)
  1. PREGABALIN [Suspect]
     Active Substance: PREGABALIN
     Indication: Pain
     Dosage: UNK
  2. PREGABALIN [Suspect]
     Active Substance: PREGABALIN
     Dosage: UNK
     Route: 065
  3. PREGABALIN [Suspect]
     Active Substance: PREGABALIN
     Dosage: UNK
     Route: 065
  4. PREGABALIN [Suspect]
     Active Substance: PREGABALIN
     Dosage: UNK
  5. CODEINE [Suspect]
     Active Substance: CODEINE
     Indication: Pain
     Dosage: UNK
  6. CODEINE [Suspect]
     Active Substance: CODEINE
     Dosage: UNK
     Route: 065
  7. CODEINE [Suspect]
     Active Substance: CODEINE
     Dosage: UNK
     Route: 065
  8. CODEINE [Suspect]
     Active Substance: CODEINE
     Dosage: UNK
  9. TRAMADOL [Suspect]
     Active Substance: TRAMADOL
     Indication: Pain
     Dosage: UNK
  10. TRAMADOL [Suspect]
     Active Substance: TRAMADOL
     Dosage: UNK
     Route: 065
  11. TRAMADOL [Suspect]
     Active Substance: TRAMADOL
     Dosage: UNK
     Route: 065
  12. TRAMADOL [Suspect]
     Active Substance: TRAMADOL
     Dosage: UNK
  13. ACETAMINOPHEN [Suspect]
     Active Substance: ACETAMINOPHEN
     Indication: Pain
     Dosage: UNK
  14. ACETAMINOPHEN [Suspect]
     Active Substance: ACETAMINOPHEN
     Dosage: UNK
     Route: 065
  15. ACETAMINOPHEN [Suspect]
     Active Substance: ACETAMINOPHEN
     Dosage: UNK
     Route: 065
  16. ACETAMINOPHEN [Suspect]
     Active Substance: ACETAMINOPHEN
     Dosage: UNK
  17. Bcg [Concomitant]
     Indication: Bladder neoplasm
     Dosage: UNK
  18. Bcg [Concomitant]
     Dosage: UNK
     Route: 065
  19. Bcg [Concomitant]
     Dosage: UNK
     Route: 065
  20. Bcg [Concomitant]
     Dosage: UNK

REACTIONS (1)
  - Therapy non-responder [Unknown]
